FAERS Safety Report 4822104-1 (Version None)
Quarter: 2005Q4

REPORT INFORMATION
  Report Type: 
  Country: None (occurrence: None)
  Receive Date: 20051103
  Receipt Date: 20051017
  Transmission Date: 20060501
  Serious: Yes (Hospitalization)
  Sender: FDA-Public Use
  Company Number: EWC051046651

PATIENT
  Age: 39 Year
  Sex: Male

DRUGS (4)
  1. OLANZAPINE [Suspect]
     Indication: SCHIZOPHRENIA
     Dosage: 20 MG/1 DAY
     Dates: start: 20040226, end: 20051006
  2. PANTOPRAZOLE [Concomitant]
  3. PROMETHAZINE HCL [Concomitant]
  4. OXAZEPAM [Concomitant]

REACTIONS (4)
  - BLOOD CREATINE PHOSPHOKINASE INCREASED [None]
  - DRUG INTERACTION [None]
  - MYALGIA [None]
  - NEUROLEPTIC MALIGNANT SYNDROME [None]
